FAERS Safety Report 4617296-3 (Version None)
Quarter: 2005Q1

REPORT INFORMATION
  Report Type: 
  Country: None (occurrence: None)
  Receive Date: 20050323
  Receipt Date: 20050103
  Transmission Date: 20050727
  Serious: Yes (Hospitalization)
  Sender: FDA-Public Use
  Company Number: DE-MERCK-0501DEU00070

PATIENT
  Age: 63 Year
  Sex: Male

DRUGS (6)
  1. VIOXX [Suspect]
     Indication: ANKYLOSING SPONDYLITIS
     Route: 048
     Dates: start: 20030201, end: 20040201
  2. VIOXX [Suspect]
     Route: 048
     Dates: start: 20040201, end: 20041001
  3. ASPIRIN [Concomitant]
     Route: 065
  4. ATORVASTATIN CALCIUM [Concomitant]
     Route: 065
  5. METOPROLOL [Concomitant]
     Route: 065
  6. CLOPIDOGREL BISULFATE [Concomitant]
     Route: 065

REACTIONS (4)
  - ANGINA PECTORIS [None]
  - ANGINA UNSTABLE [None]
  - CORONARY ARTERY DISEASE [None]
  - CORONARY ARTERY STENOSIS [None]
